FAERS Safety Report 10392245 (Version 2)
Quarter: 2014Q3

REPORT INFORMATION
  Report Type: Spontaneous
  Country: US (occurrence: US)
  Receive Date: 20140819
  Receipt Date: 20140819
  Transmission Date: 20150326
  Serious: No
  Sender: FDA-Public Use
  Company Number: US-ELI_LILLY_AND_COMPANY-US201408005527

PATIENT
  Sex: Female

DRUGS (3)
  1. EVISTA [Suspect]
     Active Substance: RALOXIFENE HYDROCHLORIDE
     Indication: OSTEOPOROSIS
     Dosage: UNK
     Dates: start: 1997
  2. OXYBUTYNIN [Concomitant]
     Active Substance: OXYBUTYNIN
  3. SULINDAC. [Concomitant]
     Active Substance: SULINDAC
     Indication: ARTHRITIS

REACTIONS (3)
  - Scar [Unknown]
  - Arthritis [Unknown]
  - Joint range of motion decreased [Unknown]
